FAERS Safety Report 5529163-1 (Version None)
Quarter: 2007Q4

REPORT INFORMATION
  Report Type: 
  Country: None (occurrence: None)
  Receive Date: 20071129
  Receipt Date: 20070628
  Transmission Date: 20080405
  Serious: No
  Sender: FDA-Public Use
  Company Number: A0643459A

PATIENT
  Age: 60 Year
  Sex: Female
  Weight: 73.6 kg

DRUGS (2)
  1. BUPROPION HCL [Suspect]
     Indication: DEPRESSION
     Dosage: 150MG TWICE PER DAY
     Route: 048
     Dates: start: 20060101, end: 20070226
  2. OXYCODONE HCL [Concomitant]

REACTIONS (2)
  - COUGH [None]
  - SLEEP DISORDER [None]
